FAERS Safety Report 12880098 (Version 1)
Quarter: 2016Q4

REPORT INFORMATION
  Report Type: Other
  Country: JP (occurrence: JP)
  Receive Date: 20161025
  Receipt Date: 20161025
  Transmission Date: 20170207
  Serious: Yes (Hospitalization, Other)
  Sender: FDA-Public Use
  Company Number: JP-ORCHID HEALTHCARE-1058749

PATIENT
  Age: 22 Year
  Sex: Female

DRUGS (1)
  1. LEVOFLOXACIN. [Suspect]
     Active Substance: LEVOFLOXACIN
     Indication: DIARRHOEA
     Route: 048

REACTIONS (2)
  - Purpura fulminans [Recovered/Resolved]
  - Hypersensitivity vasculitis [Recovered/Resolved]
